FAERS Safety Report 10912293 (Version 2)
Quarter: 2015Q1

REPORT INFORMATION
  Report Type: Spontaneous
  Country: US (occurrence: US)
  Receive Date: 20150313
  Receipt Date: 20150323
  Transmission Date: 20150721
  Serious: Yes (Other)
  Sender: FDA-Public Use
  Company Number: US-PFIZER INC-2015086935

PATIENT
  Age: 57 Year
  Sex: Male

DRUGS (1)
  1. VIAGRA [Suspect]
     Active Substance: SILDENAFIL CITRATE
     Dosage: UNK

REACTIONS (6)
  - Tooth disorder [Unknown]
  - Gingival pain [Unknown]
  - Gingival recession [Unknown]
  - Pneumonia [Unknown]
  - Cataract [Unknown]
  - Toothache [Unknown]

NARRATIVE: CASE EVENT DATE: 201502
